FAERS Safety Report 7824968-6 (Version None)
Quarter: 2011Q4

REPORT INFORMATION
  Report Type: 
  Country: None (occurrence: None)
  Receive Date: 20111019
  Receipt Date: 20110419
  Transmission Date: 20120403
  Serious: No
  Sender: FDA-Public Use
  Company Number: US-BRISTOL-MYERS SQUIBB COMPANY-15619315

PATIENT
  Sex: Female

DRUGS (2)
  1. COREG [Concomitant]
  2. AVALIDE [Suspect]
     Dosage: 1 DF = 300/12.5 TABLETS

REACTIONS (7)
  - FLUID RETENTION [None]
  - DYSPNOEA [None]
  - ARTHRALGIA [None]
  - FATIGUE [None]
  - ANXIETY [None]
  - MUSCLE SPASMS [None]
  - HYPERTENSION [None]
